FAERS Safety Report 8307571-3 (Version None)
Quarter: 2012Q2

REPORT INFORMATION
  Report Type: 
  Country: None (occurrence: None)
  Receive Date: 20120424
  Receipt Date: 20120419
  Transmission Date: 20120825
  Serious: No
  Sender: FDA-Public Use
  Company Number: US-PFIZER INC-2012097740

PATIENT
  Sex: Female
  Weight: 61.224 kg

DRUGS (6)
  1. ACETYLSALICYLIC ACID [Concomitant]
     Dosage: UNK
  2. SUBOXONE [Concomitant]
     Dosage: UNK
  3. LYRICA [Suspect]
     Indication: FIBROMYALGIA
     Dosage: 75 MG, 1X/DAY
     Route: 048
     Dates: start: 20120415
  4. IBUPROFEN (ADVIL) [Concomitant]
     Dosage: UNK
  5. CLONIDINE [Concomitant]
     Dosage: 0.5 MG, UNK
  6. EFFEXOR XR [Concomitant]
     Dosage: 150 MG, 1X/DAY

REACTIONS (3)
  - NAUSEA [None]
  - ABDOMINAL PAIN UPPER [None]
  - DIARRHOEA [None]
